FAERS Safety Report 9105757 (Version 1)
Quarter: 2013Q1

REPORT INFORMATION
  Report Type: Spontaneous
  Country: GB (occurrence: GB)
  Receive Date: 20130220
  Receipt Date: 20130220
  Transmission Date: 20140127
  Serious: Yes (Other)
  Sender: FDA-Public Use
  Company Number: GB-ABBOTT-12P-167-1029281-00

PATIENT
  Sex: Male

DRUGS (2)
  1. HUMIRA [Suspect]
     Indication: PSORIASIS
  2. HUMIRA [Suspect]
     Indication: ARTHRITIS

REACTIONS (6)
  - Nephrolithiasis [Unknown]
  - Pain [Unknown]
  - Pruritus [Unknown]
  - Asthenia [Unknown]
  - Cyanosis [Unknown]
  - Blood pressure decreased [Unknown]
